FAERS Safety Report 18968207 (Version 3)
Quarter: 2021Q2

REPORT INFORMATION
  Report Type: Spontaneous
  Country: FR (occurrence: FR)
  Receive Date: 20210304
  Receipt Date: 20210406
  Transmission Date: 20210717
  Serious: Yes (Life-Threatening, Other)
  Sender: FDA-Public Use
  Company Number: FR-HQ SPECIALTY-FR-2021INT000032

PATIENT
  Age: 71 Year
  Sex: Male

DRUGS (9)
  1. PROPOFOL. [Suspect]
     Active Substance: PROPOFOL
     Indication: INDUCTION OF ANAESTHESIA
     Dosage: STRENGTH: 3MG/KG (3 MG/KG)
     Route: 042
     Dates: start: 20210114
  2. KETAMINE [Suspect]
     Active Substance: KETAMINE
     Indication: INDUCTION OF ANAESTHESIA
     Dosage: STRENGTH: 0.5MG/KG (0.5 MG/KG)
     Route: 041
     Dates: start: 20210114
  3. DEXMEDETOMIDINE HYDROCHLORIDE. [Suspect]
     Active Substance: DEXMEDETOMIDINE HYDROCHLORIDE
     Indication: ANAESTHESIA
     Dosage: (0.5 UG/KG,5 MIN)
     Route: 042
     Dates: start: 20210114
  4. LIDOCAINE. [Suspect]
     Active Substance: LIDOCAINE
     Indication: INDUCTION OF ANAESTHESIA
     Dosage: STRENGTH: 2MG/KG (2 MG/KG)
     Route: 041
     Dates: start: 20210114
  5. DEXMEDETOMIDINE HYDROCHLORIDE. [Suspect]
     Active Substance: DEXMEDETOMIDINE HYDROCHLORIDE
     Dosage: (0.25 UG/KG,1 HR)
     Route: 042
  6. BROMURE DE ROCURONIUM [Suspect]
     Active Substance: ROCURONIUM BROMIDE
     Indication: INDUCTION OF ANAESTHESIA
     Dosage: STRENGTH: 1.2MG/KG (1.2 MG/KG)
     Route: 042
     Dates: start: 20210114
  7. APROVEL [Concomitant]
     Active Substance: IRBESARTAN
     Indication: HYPERTENSION
     Dosage: STRENGTH: 150 MG, (150 MG,1 D)
     Route: 048
  8. ANDROTARDYL [Concomitant]
     Active Substance: TESTOSTERONE
     Indication: PRODUCT USED FOR UNKNOWN INDICATION
     Dosage: STRENGTH: 250 MG/1ML, (250 MG,1 M)
     Route: 030
     Dates: end: 202010
  9. OXYGEN. [Concomitant]
     Active Substance: OXYGEN
     Indication: PRODUCT USED FOR UNKNOWN INDICATION
     Dosage: 3 MINUTES OF PREOXYGENATION WITH A FACE MASK, 100% OXYGEN (8 LIT,1 MIN)
     Route: 065

REACTIONS (5)
  - Product use in unapproved indication [Unknown]
  - Pulseless electrical activity [Recovered/Resolved]
  - Cardio-respiratory arrest [Recovered/Resolved]
  - Circulatory collapse [Recovered/Resolved]
  - Ventricular fibrillation [Recovered/Resolved]

NARRATIVE: CASE EVENT DATE: 20210114
